FAERS Safety Report 6370840-0 (Version None)
Quarter: 2009Q3

REPORT INFORMATION
  Report Type: 
  Country: None (occurrence: None)
  Receive Date: 20090923
  Receipt Date: 20070410
  Transmission Date: 20100115
  Serious: No
  Sender: FDA-Public Use
  Company Number: US-ASTRAZENECA-2006UW24804

PATIENT
  Age: 19208 Day
  Sex: Female
  Weight: 68 kg

DRUGS (28)
  1. SEROQUEL [Suspect]
     Indication: MENTAL DISORDER
     Route: 048
     Dates: start: 20000101
  2. SEROQUEL [Suspect]
     Indication: BIPOLAR DISORDER
     Route: 048
     Dates: start: 20000101
  3. SEROQUEL [Suspect]
     Indication: SLEEP DISORDER
     Route: 048
     Dates: start: 20000101
  4. SEROQUEL [Suspect]
     Indication: ANXIETY
     Route: 048
     Dates: start: 20000101
  5. SEROQUEL [Suspect]
     Dosage: 25 MG-800 MG
     Route: 048
     Dates: start: 20030625
  6. SEROQUEL [Suspect]
     Dosage: 25 MG-800 MG
     Route: 048
     Dates: start: 20030625
  7. SEROQUEL [Suspect]
     Dosage: 25 MG-800 MG
     Route: 048
     Dates: start: 20030625
  8. SEROQUEL [Suspect]
     Dosage: 25 MG-800 MG
     Route: 048
     Dates: start: 20030625
  9. LEXAPRO [Concomitant]
  10. ZOLOFT [Concomitant]
  11. SINGULAIR [Concomitant]
  12. VIOXX [Concomitant]
  13. NEURONTIN [Concomitant]
  14. HYDROCHLOROTHIAZIDE [Concomitant]
  15. ZYPREXA [Concomitant]
  16. NASACORT [Concomitant]
  17. ZOCOR [Concomitant]
  18. HYOSCYAMINE [Concomitant]
  19. INDAPAMIDE [Concomitant]
  20. MAXAIR [Concomitant]
  21. FLOVENT [Concomitant]
  22. SULINDAC [Concomitant]
  23. CYCLOBENZAPRINE [Concomitant]
  24. PREMARIN [Concomitant]
  25. PREDNISONE [Concomitant]
  26. MEDROXYPROGESTERONE [Concomitant]
  27. PRILOSEC [Concomitant]
  28. ZYRTEC [Concomitant]

REACTIONS (10)
  - ADJUSTMENT DISORDER [None]
  - BACK PAIN [None]
  - DISSOCIATIVE DISORDER [None]
  - DYSPNOEA [None]
  - DYSTHYMIC DISORDER [None]
  - HYPERTENSION [None]
  - HYPOPNOEA [None]
  - SINUSITIS [None]
  - SPASMODIC DYSPHONIA [None]
  - TYPE 1 DIABETES MELLITUS [None]
